FAERS Safety Report 6853014-6 (Version None)
Quarter: 2010Q3

REPORT INFORMATION
  Report Type: 
  Country: None (occurrence: None)
  Receive Date: 20100717
  Receipt Date: 20071128
  Transmission Date: 20110219
  Serious: Yes (Other)
  Sender: FDA-Public Use
  Company Number: US-PFIZER INC-2007101045

PATIENT
  Sex: Female

DRUGS (5)
  1. CHANTIX [Suspect]
     Indication: SMOKING CESSATION THERAPY
     Route: 048
     Dates: start: 20071109
  2. ALPRAZOLAM [Concomitant]
     Route: 048
     Dates: start: 20060101
  3. TEGRETOL [Concomitant]
     Route: 048
  4. GABAPENTIN [Concomitant]
     Route: 048
  5. CELEXA [Concomitant]
     Route: 048

REACTIONS (4)
  - ABNORMAL DREAMS [None]
  - CONVULSION [None]
  - PAIN [None]
  - STRESS [None]
